FAERS Safety Report 16051852 (Version 1)
Quarter: 2019Q1

REPORT INFORMATION
  Report Type: Spontaneous
  Country: US (occurrence: US)
  Receive Date: 20190208
  Receipt Date: 20190208
  Transmission Date: 20190418
  Serious: Yes (Life-Threatening, Hospitalization)
  Sender: FDA-Public Use
  Company Number: None

PATIENT
  Age: 71 Year
  Sex: Male
  Weight: 82 kg

DRUGS (1)
  1. CEPHALEXIN. [Suspect]
     Active Substance: CEPHALEXIN
     Indication: URINARY TRACT INFECTION
     Dates: start: 20181010

REACTIONS (4)
  - Sepsis [None]
  - Chronic obstructive pulmonary disease [None]
  - Urinary tract infection bacterial [None]
  - Treatment noncompliance [None]

NARRATIVE: CASE EVENT DATE: 20181125
